FAERS Safety Report 5504931-0 (Version None)
Quarter: 2007Q4

REPORT INFORMATION
  Report Type: 
  Country: None (occurrence: None)
  Receive Date: 20071102
  Receipt Date: 20071019
  Transmission Date: 20080405
  Serious: Yes (Other)
  Sender: FDA-Public Use
  Company Number: CA-TYCO HEALTHCARE/MALLINCKRODT-T200701271

PATIENT

DRUGS (3)
  1. RESTORIL [Suspect]
     Dosage: 2 QD
     Route: 048
  2. CARBOLITH [Suspect]
     Dosage: 600 MG, QD
     Route: 048
  3. EPIVAL [Suspect]
     Dosage: 1000 MG, QD
     Route: 048

REACTIONS (7)
  - AGITATION [None]
  - DYSARTHRIA [None]
  - FAECAL INCONTINENCE [None]
  - LOSS OF CONSCIOUSNESS [None]
  - SUICIDE ATTEMPT [None]
  - URINARY INCONTINENCE [None]
  - VOMITING [None]
